FAERS Safety Report 26072294 (Version 1)
Quarter: 2025Q4

REPORT INFORMATION
  Report Type: Spontaneous
  Country: CA (occurrence: CA)
  Receive Date: 20251120
  Receipt Date: 20251120
  Transmission Date: 20260118
  Serious: Yes (Life-Threatening)
  Sender: EISAI
  Company Number: CA-Eisai-EC-2025-200397

PATIENT
  Age: 65 Year
  Sex: Female
  Weight: 36 kg

DRUGS (3)
  1. DAYVIGO [Suspect]
     Active Substance: LEMBOREXANT
     Indication: Sleep disorder
     Route: 048
  2. DAYVIGO [Suspect]
     Active Substance: LEMBOREXANT
     Route: 048
  3. QUVIVIQ [Concomitant]
     Active Substance: DARIDOREXANT
     Indication: Sleep disorder
     Route: 048

REACTIONS (2)
  - Anger [Recovered/Resolved]
  - Irritability [Recovered/Resolved]
